FAERS Safety Report 7505737-3 (Version None)
Quarter: 2011Q2

REPORT INFORMATION
  Report Type: 
  Country: None (occurrence: None)
  Receive Date: 20110404
  Receipt Date: 20101122
  Transmission Date: 20111010
  Serious: Yes (Other)
  Sender: FDA-Public Use
  Company Number: 011996

PATIENT

DRUGS (4)
  1. MYCOPHENOLATE MOFETIL [Concomitant]
  2. CYCLOSPORINE [Concomitant]
  3. FLUDARABINE (FLUDARABINE) [Concomitant]
  4. BUSULFEX [Suspect]
     Indication: STEM CELL TRANSPLANT
     Dosage: INTRAVENOUS
     Route: 042

REACTIONS (2)
  - GRAFT VERSUS HOST DISEASE [None]
  - ACUTE GRAFT VERSUS HOST DISEASE [None]
